FAERS Safety Report 4312028-0 (Version None)
Quarter: 2004Q1

REPORT INFORMATION
  Report Type: 
  Country: None (occurrence: None)
  Receive Date: 20040305
  Receipt Date: 20040130
  Transmission Date: 20041129
  Serious: Yes (Other)
  Sender: FDA-Public Use
  Company Number: PHBS2004CA01659

PATIENT
  Age: 39 Year
  Sex: Female

DRUGS (16)
  1. ZELNORM [Suspect]
     Indication: IRRITABLE BOWEL SYNDROME
     Dosage: 6 MG, BID
     Route: 048
     Dates: start: 20040126
  2. ATROVENT [Concomitant]
     Dosage: 2 ML, TID
  3. VENTOLIN [Concomitant]
     Dosage: 2.5 ML, TID
  4. REACTINE [Concomitant]
     Dosage: 10 MG, BID
     Route: 048
  5. INSULIN NOVOLIN [Concomitant]
  6. AVAPRO [Concomitant]
     Dosage: 150 MG, QD
  7. FLUTICASONE PROPIONATE [Concomitant]
     Dosage: 2 SPRAY EACH NOSTRIL, QD
     Route: 045
  8. SODIUM CROMOGLICATE [Concomitant]
     Dosage: 4 DRP, QID
     Route: 047
  9. ADVAIR DISKUS 100/50 [Concomitant]
     Dosage: 1 PUFF, BID
  10. ATIVAN [Concomitant]
     Dosage: 1 MG, PRN
  11. PREVACID [Concomitant]
     Dosage: 30 MG, BID
  12. LIPITOR [Concomitant]
     Dosage: 10 MG, QD
  13. METOCLOPRAMIDE [Concomitant]
     Dosage: 10 MG, TID
  14. MIACALCIN [Concomitant]
     Route: 045
  15. NIZORAL [Concomitant]
  16. METFORMIN [Concomitant]
     Dosage: 250 MG, TID

REACTIONS (2)
  - BLOOD GLUCOSE FLUCTUATION [None]
  - HYPOGLYCAEMIA [None]
